FAERS Safety Report 8552096-3 (Version None)
Quarter: 2012Q3

REPORT INFORMATION
  Report Type: 
  Country: None (occurrence: None)
  Receive Date: 20120731
  Receipt Date: 20120719
  Transmission Date: 20120928
  Serious: No
  Sender: FDA-Public Use
  Company Number: US-BIOGENIDEC-2012BI022047

PATIENT
  Sex: Female

DRUGS (1)
  1. TYSABRI [Suspect]
     Indication: MULTIPLE SCLEROSIS
     Route: 042
     Dates: start: 20120321

REACTIONS (5)
  - NECK PAIN [None]
  - SPINAL PAIN [None]
  - BALANCE DISORDER [None]
  - VISUAL IMPAIRMENT [None]
  - THINKING ABNORMAL [None]
